FAERS Safety Report 18565046 (Version 1)
Quarter: 2020Q4

REPORT INFORMATION
  Report Type: Spontaneous
  Country: US (occurrence: US)
  Receive Date: 20201201
  Receipt Date: 20201201
  Transmission Date: 20210114
  Serious: Yes (Other)
  Sender: FDA-Public Use
  Company Number: US-MYLANLABS-2020M1097964

PATIENT
  Age: 9 Month
  Sex: Female

DRUGS (7)
  1. TOPOTECAN [Suspect]
     Active Substance: TOPOTECAN HYDROCHLORIDE
     Indication: CONGENITAL RETINOBLASTOMA
     Dosage: 0.6 MILLIGRAM SELECTIVE OPHTHALMIC...
  2. VINCRISTINE [Suspect]
     Active Substance: VINCRISTINE
     Indication: CONGENITAL RETINOBLASTOMA
     Dosage: 0.05 MILLIGRAM/KILOGRAM
     Route: 042
  3. CARBOPLATIN. [Suspect]
     Active Substance: CARBOPLATIN
     Indication: CONGENITAL RETINOBLASTOMA
     Dosage: 18.6 MILLIGRAM/KILOGRAM
     Route: 042
  4. CARBOPLATIN. [Suspect]
     Active Substance: CARBOPLATIN
     Dosage: 60 MILLIGRAM SELECTIVE OPHTHALMIC...
  5. MELPHALAN. [Suspect]
     Active Substance: MELPHALAN
     Indication: CONGENITAL RETINOBLASTOMA
     Dosage: 6 MILLIGRAM THREE CYCLES; SELECTIVE OPHTHALMIC...
  6. ETOPOSIDE. [Suspect]
     Active Substance: ETOPOSIDE
     Indication: CONGENITAL RETINOBLASTOMA
     Dosage: 5 MILLIGRAM/KILOGRAM
     Route: 042
  7. MELPHALAN. [Suspect]
     Active Substance: MELPHALAN
     Dosage: 8 MILLIGRAM SELECTIVE OPHTHALMIC....

REACTIONS (2)
  - Off label use [Unknown]
  - Myelosuppression [Unknown]
